FAERS Safety Report 5732481-5 (Version None)
Quarter: 2008Q2

REPORT INFORMATION
  Report Type: 
  Country: None (occurrence: None)
  Receive Date: 20080508
  Receipt Date: 20080425
  Transmission Date: 20081010
  Serious: Yes (Other)
  Sender: FDA-Public Use
  Company Number: US-ELI_LILLY_AND_COMPANY-US200804002661

PATIENT
  Age: 52 Year
  Sex: Female
  Weight: 113.83 kg

DRUGS (5)
  1. CYMBALTA [Suspect]
     Indication: FIBROMYALGIA
     Dosage: 40 MG, DAILY (1/D)
  2. LOTREL [Concomitant]
  3. DIOVAN [Concomitant]
     Dosage: 160 MG, UNK
  4. HYDROCHLOROTHIAZIDE [Concomitant]
     Dosage: 25 MG, AS NEEDED
  5. ALLEGRA [Concomitant]
     Dosage: 180 MG, UNK

REACTIONS (5)
  - ARRHYTHMIA [None]
  - BLOOD CHOLESTEROL INCREASED [None]
  - BLOOD TRIGLYCERIDES INCREASED [None]
  - HIGH DENSITY LIPOPROTEIN DECREASED [None]
  - LOW DENSITY LIPOPROTEIN INCREASED [None]
